FAERS Safety Report 9916911 (Version 3)
Quarter: 2014Q1

REPORT INFORMATION
  Report Type: Spontaneous
  Country: US (occurrence: US)
  Receive Date: 20140221
  Receipt Date: 20140326
  Transmission Date: 20141002
  Serious: No
  Sender: FDA-Public Use
  Company Number: US-009507513-1402USA005694

PATIENT
  Age: 60 Year
  Sex: Male
  Weight: 107.48 kg

DRUGS (10)
  1. VICTRELIS [Suspect]
     Dosage: 800 MG, 4-200MG CAPSULES THREE TIMES A DAY EVERY 7-9 HOURS WITH FOOD START ON WEEK 5
     Route: 048
  2. REBETOL [Suspect]
     Dosage: UNK
     Route: 048
  3. PEGASYS [Suspect]
  4. CENTRUM SILVER [Concomitant]
  5. TRAZODONE HYDROCHLORIDE [Concomitant]
     Route: 048
  6. VITAMIN B COMPLEX [Concomitant]
     Route: 048
  7. OMEGA-3 MARINE TRIGLYCERIDES [Concomitant]
     Route: 048
  8. ASCORBIC ACID [Concomitant]
     Route: 048
  9. MILK THISTLE [Concomitant]
     Route: 048
  10. HYDROXYZINE HYDROCHLORIDE [Concomitant]
     Route: 048

REACTIONS (13)
  - Sluggishness [Unknown]
  - Weight increased [Unknown]
  - Weight increased [Unknown]
  - Pain [Unknown]
  - Influenza like illness [Unknown]
  - Restlessness [Unknown]
  - Nausea [Unknown]
  - Fatigue [Unknown]
  - Headache [Unknown]
  - Rash [Unknown]
  - Fatigue [Unknown]
  - Fatigue [Unknown]
  - Therapeutic response unexpected [Unknown]
